FAERS Safety Report 6545934-7 (Version None)
Quarter: 2010Q1

REPORT INFORMATION
  Report Type: 
  Country: None (occurrence: None)
  Receive Date: 20100121
  Receipt Date: 20100121
  Transmission Date: 20100710
  Serious: Yes (Hospitalization)
  Sender: FDA-Public Use
  Company Number: None

PATIENT
  Sex: Male
  Weight: 103.8737 kg

DRUGS (18)
  1. REVLIMID [Suspect]
     Indication: MULTIPLE MYELOMA
     Dosage: 25MG DAILY PO
     Route: 048
     Dates: start: 20091020, end: 20100120
  2. METOPROLOL TARTRATE [Concomitant]
  3. MIRILAX [Concomitant]
  4. ASPIRIN [Concomitant]
  5. OXYCODONE [Concomitant]
  6. MENS MVI [Concomitant]
  7. SENOKOT [Concomitant]
  8. COLACE [Concomitant]
  9. DAXIDOX [Concomitant]
  10. ORETIC [Concomitant]
  11. AREDIA [Concomitant]
  12. PRAVACHOL [Concomitant]
  13. PROTONIX [Concomitant]
  14. DECADRON [Concomitant]
  15. BACTRIM [Concomitant]
  16. COMPAZINE [Concomitant]
  17. LIDODERM [Concomitant]
  18. MOM [Concomitant]

REACTIONS (2)
  - CELLULITIS ORBITAL [None]
  - SINUSITIS [None]
